FAERS Safety Report 25241934 (Version 3)
Quarter: 2025Q3

REPORT INFORMATION
  Report Type: Report from Study
  Country: CA (occurrence: CA)
  Receive Date: 20250426
  Receipt Date: 20250903
  Transmission Date: 20251020
  Serious: Yes (Hospitalization, Other)
  Sender: CELLTRION
  Company Number: CA-CELLTRION INC.-2025CA012389

PATIENT

DRUGS (2)
  1. USTEKINUMAB [Suspect]
     Active Substance: USTEKINUMAB
     Indication: Psoriasis
     Route: 058
     Dates: start: 20250128
  2. USTEKINUMAB [Suspect]
     Active Substance: USTEKINUMAB
     Dates: start: 20250422

REACTIONS (4)
  - Gastritis [Unknown]
  - Gastrointestinal polyp [Unknown]
  - Bezoar [Unknown]
  - Peri-implantitis [Unknown]
